FAERS Safety Report 7177417-8 (Version None)
Quarter: 2010Q4

REPORT INFORMATION
  Report Type: 
  Country: None (occurrence: None)
  Receive Date: 20101220
  Receipt Date: 20101207
  Transmission Date: 20110411
  Serious: Yes (Hospitalization, Other)
  Sender: FDA-Public Use
  Company Number: JP-JNJFOC-20101206004

PATIENT
  Sex: Male

DRUGS (7)
  1. CRAVIT [Suspect]
     Indication: ULCER
     Route: 048
  2. RISPERIDONE [Concomitant]
     Indication: SCHIZOPHRENIA
     Route: 048
  3. RISPERIDONE [Concomitant]
     Route: 048
  4. TRIHEXYPHENIDYL HCL [Concomitant]
     Indication: SCHIZOPHRENIA
     Route: 048
  5. LULLAN [Concomitant]
     Indication: SCHIZOPHRENIA
     Route: 048
  6. DEPAS [Concomitant]
     Indication: SCHIZOPHRENIA
     Route: 048
  7. DORAL [Concomitant]
     Indication: SCHIZOPHRENIA
     Route: 048

REACTIONS (6)
  - BLISTER [None]
  - BLOOD ALKALINE PHOSPHATASE INCREASED [None]
  - DRUG HYPERSENSITIVITY [None]
  - HAEMARTHROSIS [None]
  - PYREXIA [None]
  - SKIN LESION [None]
